FAERS Safety Report 5080034-7 (Version None)
Quarter: 2006Q3

REPORT INFORMATION
  Report Type: 
  Country: None (occurrence: None)
  Receive Date: 20060815
  Receipt Date: 20060710
  Transmission Date: 20061208
  Serious: Yes (Other)
  Sender: FDA-Public Use
  Company Number: 2006GB01194

PATIENT
  Age: 41 Year
  Sex: Female
  Weight: 58 kg

DRUGS (1)
  1. SYMBICORT [Suspect]
     Indication: ASTHMA
     Dosage: 2 DF TWICE A DAY
     Route: 055
     Dates: start: 20060518, end: 20060519

REACTIONS (4)
  - OEDEMA PERIPHERAL [None]
  - RASH ERYTHEMATOUS [None]
  - SKIN EXFOLIATION [None]
  - URTICARIA [None]
